FAERS Safety Report 4740428-3 (Version None)
Quarter: 2005Q3

REPORT INFORMATION
  Report Type: 
  Country: None (occurrence: None)
  Receive Date: 20050810
  Receipt Date: 20050803
  Transmission Date: 20060218
  Serious: Yes (Disabling)
  Sender: FDA-Public Use
  Company Number: FR-BRISTOL-MYERS SQUIBB COMPANY-13063417

PATIENT
  Age: 29 Year
  Sex: Female

DRUGS (2)
  1. SUSTIVA [Suspect]
     Indication: HIV INFECTION
     Dosage: INTERUPTED ON 30-APR-2004 AND PERMANENTLY D/C'D ON 11-MAY-2005
     Dates: start: 20040429, end: 20040511
  2. TENOFOVIR DISOPROXIL FUMARATE [Suspect]
     Indication: HIV INFECTION
     Route: 048
     Dates: start: 20040429, end: 20040513

REACTIONS (2)
  - INSOMNIA [None]
  - MENTAL DISORDER [None]
